FAERS Safety Report 5194444-0 (Version None)
Quarter: 2006Q4

REPORT INFORMATION
  Report Type: 
  Country: None (occurrence: None)
  Receive Date: 20061228
  Receipt Date: 20061006
  Transmission Date: 20070319
  Serious: Yes (Life-Threatening, Hospitalization, Other)
  Sender: FDA-Public Use
  Company Number: BE-MERCK-0610BEL00011

PATIENT
  Age: 77 Year
  Sex: Male
  Weight: 69 kg

DRUGS (3)
  1. SINGULAIR [Suspect]
     Indication: ASTHMA
     Route: 048
     Dates: start: 20010517, end: 20060804
  2. BUDESONIDE AND FORMOTEROL FUMARATE [Concomitant]
     Indication: ASTHMA
     Dates: start: 20020101
  3. METHYLPREDNISOLONE [Concomitant]
     Route: 048
     Dates: start: 20060201, end: 20060201

REACTIONS (1)
  - ALLERGIC GRANULOMATOUS ANGIITIS [None]
